FAERS Safety Report 17928157 (Version 1)
Quarter: 2020Q2

REPORT INFORMATION
  Report Type: Other
  Country: ID (occurrence: ID)
  Receive Date: 20200623
  Receipt Date: 20200623
  Transmission Date: 20200714
  Serious: Yes (Hospitalization)
  Sender: FDA-Public Use
  Company Number: ID-AJANTA PHARMA USA INC.-2086539

PATIENT
  Age: 30 Year
  Sex: Female

DRUGS (1)
  1. RANITIDINE (ANDA 209859) [Suspect]
     Active Substance: RANITIDINE
     Route: 048

REACTIONS (1)
  - Ventricular tachycardia [Recovered/Resolved]
